FAERS Safety Report 8539490-1 (Version None)
Quarter: 2012Q3

REPORT INFORMATION
  Report Type: 
  Country: None (occurrence: None)
  Receive Date: 20120726
  Receipt Date: 20120723
  Transmission Date: 20120928
  Serious: Yes (Other)
  Sender: FDA-Public Use
  Company Number: BR-US-EMD SERONO, INC.-7145804

PATIENT
  Sex: Female

DRUGS (8)
  1. SOLOZOK (SELOZOK) [Concomitant]
     Indication: HYPERTENSION
  2. DEPAKOTE [Concomitant]
     Indication: PRODUCT USED FOR UNKNOWN INDICATION
  3. SINVASTATINE (SIMVASTATIN) [Concomitant]
     Indication: PRODUCT USED FOR UNKNOWN INDICATION
  4. MANTIDAM (MANTIDAN) [Concomitant]
     Indication: FATIGUE
  5. DEPAKENE [Concomitant]
     Indication: ANXIETY
  6. HYDROCHLOROTHIAZIDE [Concomitant]
     Indication: HYPERTENSION
  7. DORAREN (DONAREN) (TRAZODONE) [Concomitant]
     Indication: MULTIPLE SCLEROSIS
  8. REBIF [Suspect]
     Indication: RELAPSING-REMITTING MULTIPLE SCLEROSIS
     Route: 058
     Dates: start: 20080301

REACTIONS (5)
  - PAIN [None]
  - MICTURITION URGENCY [None]
  - GASTRITIS EROSIVE [None]
  - DYSURIA [None]
  - MALAISE [None]
